FAERS Safety Report 19031711 (Version 2)
Quarter: 2022Q1

REPORT INFORMATION
  Report Type: Spontaneous
  Country: US (occurrence: None)
  Receive Date: 20210319
  Receipt Date: 20220301
  Transmission Date: 20220423
  Serious: Yes (Other)
  Sender: FDA-Public Use
  Company Number: 2021A139416

PATIENT
  Age: 68 Year
  Sex: Female

DRUGS (17)
  1. NEXIUM [Suspect]
     Active Substance: ESOMEPRAZOLE MAGNESIUM
     Indication: Gastrooesophageal reflux disease
     Dosage: FROR VARIOUS DATES AND YEARS BEGINNING IN APPROXIMATELY 1999
     Route: 048
     Dates: start: 1999
  2. NEXIUM [Suspect]
     Active Substance: ESOMEPRAZOLE MAGNESIUM
     Indication: Gastrooesophageal reflux disease
     Route: 048
     Dates: start: 2003
  3. PRILOSEC [Suspect]
     Active Substance: OMEPRAZOLE MAGNESIUM
     Indication: Gastrooesophageal reflux disease
     Dosage: FROM VARIOUS DATES AND YEARS BEGINNING IN APPROXIMATELY 1999
     Route: 048
     Dates: start: 1999
  4. PRILOSEC [Suspect]
     Active Substance: OMEPRAZOLE MAGNESIUM
     Indication: Gastrooesophageal reflux disease
     Dosage: GENERIC
     Route: 065
     Dates: start: 1999
  5. PRILOSEC [Suspect]
     Active Substance: OMEPRAZOLE MAGNESIUM
     Indication: Gastrooesophageal reflux disease
     Route: 048
     Dates: start: 1999, end: 2002
  6. PRILOSEC [Suspect]
     Active Substance: OMEPRAZOLE MAGNESIUM
     Indication: Gastrooesophageal reflux disease
     Route: 048
     Dates: start: 2003
  7. PRILOSEC OTC [Suspect]
     Active Substance: OMEPRAZOLE MAGNESIUM
     Indication: Gastrooesophageal reflux disease
     Route: 048
     Dates: start: 2003
  8. DOXYCYCLINE [Concomitant]
     Active Substance: DOXYCYCLINE
  9. CELEBREX [Concomitant]
     Active Substance: CELECOXIB
  10. VIOXX [Concomitant]
     Active Substance: ROFECOXIB
  11. DEMADEX [Concomitant]
     Active Substance: TORSEMIDE
  12. TORSEMIDE [Concomitant]
     Active Substance: TORSEMIDE
  13. LISINOPRIL [Concomitant]
     Active Substance: LISINOPRIL
  14. NAPROXEN [Concomitant]
     Active Substance: NAPROXEN
  15. FUROSEMIDE [Concomitant]
     Active Substance: FUROSEMIDE
  16. LEXAQUIN [Concomitant]
  17. SIMVASTATIN [Concomitant]
     Active Substance: SIMVASTATIN

REACTIONS (3)
  - Chronic kidney disease [Not Recovered/Not Resolved]
  - Renal failure [Unknown]
  - Rebound acid hypersecretion [Unknown]

NARRATIVE: CASE EVENT DATE: 20110101
